FAERS Safety Report 7994430-9 (Version None)
Quarter: 2011Q4

REPORT INFORMATION
  Report Type: 
  Country: None (occurrence: None)
  Receive Date: 20111217
  Receipt Date: 20111217
  Transmission Date: 20120403
  Serious: Yes (Hospitalization)
  Sender: FDA-Public Use
  Company Number: None

PATIENT
  Sex: Male
  Weight: 31.1 kg

DRUGS (9)
  1. CYCLOPHOSPHAMIDE [Suspect]
     Dosage: 535 MG
  2. VINCRISTINE SULFATE [Suspect]
     Dosage: 3.8 MG
  3. CYTARABINE [Suspect]
     Dosage: 12720 MG
  4. G-CSF (FILGRASTIM, AMGEN) [Suspect]
     Dosage: 2700 MCG
  5. METHOTREXATE [Suspect]
     Dosage: 5500 MG
  6. ONCASPAR [Suspect]
     Dosage: 2000 IU
  7. ETOPOSIDE [Suspect]
     Dosage: 320 MG
  8. LEUCOVORIN CALCIUM [Suspect]
     Dosage: 48 MG
  9. MERCAPTOPURINE [Suspect]
     Dosage: 275 MG

REACTIONS (2)
  - PANCREATIC PSEUDOCYST [None]
  - PANCREATITIS [None]
